FAERS Safety Report 4601805-4 (Version None)
Quarter: 2005Q1

REPORT INFORMATION
  Report Type: 
  Country: None (occurrence: None)
  Receive Date: 20050128
  Receipt Date: 20041105
  Transmission Date: 20050727
  Serious: Yes (Other)
  Sender: FDA-Public Use
  Company Number: 140651USA

PATIENT
  Age: 62 Year
  Sex: Female

DRUGS (6)
  1. COPAXONE [Suspect]
     Indication: MULTIPLE SCLEROSIS
     Dates: end: 20041030
  2. PROZAC [Concomitant]
  3. ZOCOR [Concomitant]
  4. BACLOFEN [Concomitant]
  5. WELLBUTRIN [Concomitant]
  6. PROVIGIL [Concomitant]

REACTIONS (1)
  - ANAPHYLACTIC REACTION [None]
